FAERS Safety Report 8024929-0 (Version None)
Quarter: 2012Q1

REPORT INFORMATION
  Report Type: 
  Country: None (occurrence: None)
  Receive Date: 20120103
  Receipt Date: 20111222
  Transmission Date: 20120608
  Serious: Yes (Hospitalization)
  Sender: FDA-Public Use
  Company Number: ACO_28606_2011

PATIENT
  Age: 40 Year
  Sex: Male

DRUGS (2)
  1. FAMPYRA (DALFAMPRIDINE) TABLET, 10MG [Suspect]
     Indication: MULTIPLE SCLEROSIS
     Dosage: 10 MG, BID, ORAL
     Route: 048
     Dates: start: 20111008
  2. AVONEX [Concomitant]

REACTIONS (3)
  - FEMORAL NECK FRACTURE [None]
  - BALANCE DISORDER [None]
  - FALL [None]
